FAERS Safety Report 8623248-9 (Version None)
Quarter: 2012Q3

REPORT INFORMATION
  Report Type: 
  Country: None (occurrence: None)
  Receive Date: 20120827
  Receipt Date: 20120817
  Transmission Date: 20120928
  Serious: Yes (Hospitalization)
  Sender: FDA-Public Use
  Company Number: US-US-EMD SERONO, INC.-7155928

PATIENT
  Sex: Female

DRUGS (1)
  1. REBIF [Suspect]
     Indication: MULTIPLE SCLEROSIS
     Route: 058
     Dates: start: 20050208, end: 20110901

REACTIONS (8)
  - SEPSIS [None]
  - AUTOIMMUNE HEPATITIS [None]
  - STAPHYLOCOCCAL INFECTION [None]
  - DEEP VEIN THROMBOSIS [None]
  - TYPE 2 DIABETES MELLITUS [None]
  - CELLULITIS [None]
  - OEDEMA [None]
  - INFECTION [None]
